FAERS Safety Report 8276268-0 (Version None)
Quarter: 2012Q2

REPORT INFORMATION
  Report Type: 
  Country: None (occurrence: None)
  Receive Date: 20120412
  Receipt Date: 20120404
  Transmission Date: 20120825
  Serious: Yes (Other)
  Sender: FDA-Public Use
  Company Number: PHEH2012US007360

PATIENT
  Sex: Female
  Weight: 48.073 kg

DRUGS (6)
  1. RECLAST [Suspect]
     Indication: OSTEOPOROSIS
     Dosage: 5 MG/100 ML (1 PER YEAR)
     Route: 042
     Dates: start: 20120210
  2. RECLAST [Suspect]
     Indication: OSTEOPENIA
  3. LIPITOR [Concomitant]
     Indication: HYPERLIPIDAEMIA
     Dosage: DAILY
     Route: 048
  4. VITAMIN D [Concomitant]
     Dosage: DAILY
     Route: 048
  5. CALCIUM CARBONATE [Concomitant]
  6. ENALAPRIL MALEATE [Concomitant]
     Indication: HYPERTENSION
     Dosage: DAILY
     Route: 048

REACTIONS (16)
  - DIZZINESS [None]
  - FATIGUE [None]
  - SLEEP DISORDER [None]
  - HEADACHE [None]
  - ERYTHEMA [None]
  - NAUSEA [None]
  - BONE PAIN [None]
  - ERUCTATION [None]
  - POLLAKIURIA [None]
  - ASTHENIA [None]
  - ARTHRALGIA [None]
  - PRESYNCOPE [None]
  - PAIN [None]
  - ABDOMINAL DISCOMFORT [None]
  - NECK PAIN [None]
  - JOINT SWELLING [None]
